FAERS Safety Report 5524926-0 (Version None)
Quarter: 2007Q4

REPORT INFORMATION
  Report Type: 
  Country: None (occurrence: None)
  Receive Date: 20071126
  Receipt Date: 20071122
  Transmission Date: 20080405
  Serious: Yes (Death)
  Sender: FDA-Public Use
  Company Number: PHBS2007JP19063

PATIENT
  Age: 52 Year
  Sex: Male

DRUGS (2)
  1. GLEEVEC [Suspect]
     Indication: ACUTE LYMPHOCYTIC LEUKAEMIA
     Route: 048
  2. HEMATOPOETIC PROGENITOR CELLS HUMAN [Concomitant]
     Dosage: PERIPHERAL BLOOD STEM CELL TRANSPLANT (PBSCT
     Route: 065

REACTIONS (1)
  - PNEUMONIA BACTERIAL [None]
